FAERS Safety Report 7153814-1 (Version None)
Quarter: 2010Q4

REPORT INFORMATION
  Report Type: 
  Country: None (occurrence: None)
  Receive Date: 20101213
  Receipt Date: 20100618
  Transmission Date: 20110411
  Serious: No
  Sender: FDA-Public Use
  Company Number: US-ABBOTT-10P-163-0652734-00

PATIENT
  Sex: Female
  Weight: 90.8 kg

DRUGS (1)
  1. MERIDIA [Suspect]
     Indication: INSULIN RESISTANCE
     Dates: start: 20100401

REACTIONS (5)
  - AGITATION [None]
  - ASTHENIA [None]
  - DEPRESSION [None]
  - DIZZINESS [None]
  - NERVOUSNESS [None]
